FAERS Safety Report 7937514-3 (Version None)
Quarter: 2011Q4

REPORT INFORMATION
  Report Type: 
  Country: None (occurrence: None)
  Receive Date: 20111123
  Receipt Date: 20111111
  Transmission Date: 20120403
  Serious: Yes (Hospitalization)
  Sender: FDA-Public Use
  Company Number: IT-CELGENEUS-083-20785-11071113

PATIENT
  Sex: Male

DRUGS (8)
  1. THALIDOMIDE [Suspect]
     Indication: MULTIPLE MYELOMA
     Dosage: 50 MILLIGRAM
     Route: 048
     Dates: start: 20110609, end: 20110614
  2. THALIDOMIDE [Suspect]
     Dosage: 50 MILLIGRAM
     Route: 048
     Dates: start: 20110608, end: 20110611
  3. PREDNISONE [Concomitant]
     Indication: MULTIPLE MYELOMA
     Dosage: 50 MILLIGRAM
     Route: 048
     Dates: start: 20110608, end: 20110611
  4. ALLOPURINOL [Concomitant]
     Route: 065
  5. OLPRESS [Concomitant]
  6. ARANESP [Concomitant]
     Route: 065
  7. ALKERAN [Concomitant]
     Indication: MULTIPLE MYELOMA
     Dosage: 10 MILLIGRAM
     Route: 048
     Dates: start: 20110608, end: 20110611
  8. ASPIRIN [Concomitant]
     Route: 065

REACTIONS (1)
  - HICCUPS [None]
